FAERS Safety Report 4493422-4 (Version None)
Quarter: 2004Q4

REPORT INFORMATION
  Report Type: 
  Country: None (occurrence: None)
  Receive Date: 20041102
  Receipt Date: 20041026
  Transmission Date: 20050328
  Serious: Yes (Hospitalization)
  Sender: FDA-Public Use
  Company Number: A0531272A

PATIENT
  Age: 73 Year
  Sex: Male

DRUGS (8)
  1. ALKERAN [Suspect]
     Indication: MULTIPLE MYELOMA
     Dosage: 293 MG/INTRAVENOUS
     Route: 042
     Dates: start: 20040902
  2. THALIDOMIDE (THALIDOMIDE) [Suspect]
  3. BORTEZOMIB [Concomitant]
  4. DEXAMETHASONE [Concomitant]
  5. CISPLATIN [Concomitant]
  6. DOXORUBICIN HCL [Concomitant]
  7. CYCLOPHOSPHAMIDE [Concomitant]
  8. ETOPOSIDE [Concomitant]

REACTIONS (4)
  - COLITIS [None]
  - POST PROCEDURAL DIARRHOEA [None]
  - PYREXIA [None]
  - VIRAL INFECTION [None]
